FAERS Safety Report 13374964 (Version 1)
Quarter: 2017Q1

REPORT INFORMATION
  Report Type: Report from Study
  Country: KR (occurrence: KR)
  Receive Date: 20170327
  Receipt Date: 20170327
  Transmission Date: 20170429
  Serious: Yes (Death)
  Sender: FDA-Public Use
  Company Number: KR-BAYER-2017-051792

PATIENT
  Sex: Female

DRUGS (1)
  1. STIVARGA [Suspect]
     Active Substance: REGORAFENIB
     Indication: COLORECTAL CANCER METASTATIC
     Route: 048

REACTIONS (3)
  - Metastatic neoplasm [Fatal]
  - Coma hepatic [Fatal]
  - Cardio-respiratory arrest [Fatal]
